FAERS Safety Report 22056933 (Version 2)
Quarter: 2023Q2

REPORT INFORMATION
  Report Type: Spontaneous
  Country: IE (occurrence: IE)
  Receive Date: 20230303
  Receipt Date: 20230629
  Transmission Date: 20230722
  Serious: Yes (Death)
  Sender: FDA-Public Use
  Company Number: None

PATIENT
  Age: 40 Year
  Sex: Female

DRUGS (1)
  1. COPAXONE [Suspect]
     Active Substance: GLATIRAMER ACETATE
     Indication: Multiple sclerosis
     Dosage: STRENGTH : 20 MG/ML , FREQUENCY TIME  : 1 WEEKS, GLATIRAMER ACETATE MORE THAN 1 YEAR 3 TIMES A WEEK
     Route: 065

REACTIONS (5)
  - Anaphylactic shock [Fatal]
  - Brain injury [Fatal]
  - Cardiac arrest [Fatal]
  - Brain hypoxia [Fatal]
  - Cerebral ischaemia [Fatal]

NARRATIVE: CASE EVENT DATE: 20220209
